FAERS Safety Report 5127756-7 (Version None)
Quarter: 2006Q4

REPORT INFORMATION
  Report Type: 
  Country: None (occurrence: None)
  Receive Date: 20061016
  Receipt Date: 20061005
  Transmission Date: 20070319
  Serious: Yes (Hospitalization, Other)
  Sender: FDA-Public Use
  Company Number: US-JNJFOC-20061001530

PATIENT
  Sex: Female
  Weight: 68.95 kg

DRUGS (17)
  1. REMICADE [Suspect]
  2. REMICADE [Suspect]
     Indication: CROHN'S DISEASE
  3. FIORICET [Concomitant]
  4. TOPAMAX [Concomitant]
  5. ATARAX [Concomitant]
  6. ANUSOL [Concomitant]
  7. MERCAPTOPURINE [Concomitant]
  8. ATENOLOL [Concomitant]
  9. LEVOTHYROXINE SODIUM [Concomitant]
  10. NEURONTIN [Concomitant]
  11. OMEPRAZOLE [Concomitant]
  12. RESTORIL [Concomitant]
  13. ASACOL [Concomitant]
  14. FOLIC ACID [Concomitant]
  15. TYLENOL W/ CODEINE [Concomitant]
  16. TRIAMCINOLONE [Concomitant]
     Indication: STOMATITIS
     Route: 061
  17. XANAX [Concomitant]

REACTIONS (1)
  - HISTOPLASMOSIS [None]
